FAERS Safety Report 10437540 (Version 1)
Quarter: 2014Q3

REPORT INFORMATION
  Report Type: Spontaneous
  Country: US (occurrence: US)
  Receive Date: 20140908
  Receipt Date: 20140908
  Transmission Date: 20150326
  Serious: No
  Sender: FDA-Public Use
  Company Number: US-BRISTOL-MYERS SQUIBB COMPANY-20405981

PATIENT
  Age: 6 Decade
  Sex: Female

DRUGS (5)
  1. ABILIFY [Suspect]
     Active Substance: ARIPIPRAZOLE
     Indication: POST-TRAUMATIC STRESS DISORDER
     Dosage: TITRATED UP TO 10 MG/DAY, THEN DECREASED TO 5 MG/DAY
     Dates: start: 201310, end: 201401
  2. ABILIFY [Suspect]
     Active Substance: ARIPIPRAZOLE
     Indication: DEPRESSION
     Dosage: TITRATED UP TO 10 MG/DAY, THEN DECREASED TO 5 MG/DAY
     Dates: start: 201310, end: 201401
  3. PROZAC [Concomitant]
     Active Substance: FLUOXETINE HYDROCHLORIDE
     Dates: start: 201310
  4. KLONOPIN [Concomitant]
     Active Substance: CLONAZEPAM
     Dates: start: 201310
  5. PROPANOLOL HYDROCHLORIDE [Concomitant]
     Active Substance: PROPRANOLOL HYDROCHLORIDE
     Dates: start: 201310

REACTIONS (2)
  - Swelling [Recovered/Resolved]
  - Breast tenderness [Recovered/Resolved]
